FAERS Safety Report 18135083 (Version 1)
Quarter: 2020Q3

REPORT INFORMATION
  Report Type: Spontaneous
  Country: US (occurrence: US)
  Receive Date: 20200811
  Receipt Date: 20200811
  Transmission Date: 20201103
  Serious: Yes (Hospitalization)
  Sender: FDA-Public Use
  Company Number: None

PATIENT
  Age: 76 Year
  Sex: Female
  Weight: 80.38 kg

DRUGS (1)
  1. PEGFILGRASTIM?BMEZ [Suspect]
     Active Substance: PEGFILGRASTIM-BMEZ
     Indication: FEBRILE NEUTROPENIA
     Dosage: ?          OTHER FREQUENCY:ONCE;?
     Route: 058
     Dates: start: 20200730, end: 20200730

REACTIONS (2)
  - Febrile neutropenia [None]
  - White blood cell count decreased [None]

NARRATIVE: CASE EVENT DATE: 20200806
